FAERS Safety Report 23688337 (Version 1)
Quarter: 2024Q1

REPORT INFORMATION
  Report Type: Spontaneous
  Country: US (occurrence: US)
  Receive Date: 20240329
  Receipt Date: 20240329
  Transmission Date: 20240410
  Serious: Yes (Other)
  Sender: FDA-Public Use
  Company Number: US-BRISTOL-MYERS SQUIBB COMPANY-2024-046438

PATIENT

DRUGS (3)
  1. DASATINIB [Suspect]
     Active Substance: DASATINIB
     Indication: Chronic myeloid leukaemia
     Dates: start: 2023
  2. DASATINIB [Suspect]
     Active Substance: DASATINIB
  3. HYDROXYUREA [Concomitant]
     Active Substance: HYDROXYUREA
     Dates: start: 2023

REACTIONS (2)
  - Cytopenia [Recovering/Resolving]
  - Rash [Unknown]

NARRATIVE: CASE EVENT DATE: 20230101
